FAERS Safety Report 15497360 (Version 2)
Quarter: 2018Q4

REPORT INFORMATION
  Report Type: Spontaneous
  Country: US (occurrence: US)
  Receive Date: 20181015
  Receipt Date: 20181115
  Transmission Date: 20190205
  Serious: No
  Sender: FDA-Public Use
  Company Number: US-ASTRAZENECA-2018SF24187

PATIENT
  Sex: Female

DRUGS (2)
  1. BEVESPI AEROSPHERE [Suspect]
     Active Substance: FORMOTEROL FUMARATE\GLYCOPYRROLATE
     Indication: CHRONIC OBSTRUCTIVE PULMONARY DISEASE
     Dosage: 9MCG/4.5MCG, TWO INHALATIONS TWO TIMES A DAY
     Route: 055
     Dates: start: 2016
  2. SYMBICORT [Suspect]
     Active Substance: BUDESONIDE\FORMOTEROL FUMARATE DIHYDRATE
     Indication: CHRONIC OBSTRUCTIVE PULMONARY DISEASE
     Dosage: TWICE A DAY
     Route: 055
     Dates: start: 2016, end: 2016

REACTIONS (7)
  - Halo vision [Unknown]
  - Muscle spasms [Unknown]
  - Cough [Unknown]
  - Intraocular pressure increased [Unknown]
  - Muscular weakness [Unknown]
  - Gait disturbance [Unknown]
  - Pollakiuria [Unknown]
